FAERS Safety Report 6078697-2 (Version None)
Quarter: 2009Q1

REPORT INFORMATION
  Report Type: 
  Country: None (occurrence: None)
  Receive Date: 20090216
  Receipt Date: 20090204
  Transmission Date: 20090719
  Serious: Yes (Death)
  Sender: FDA-Public Use
  Company Number: US-TYCO HEALTHCARE/MALLINCKRODT-T200900013

PATIENT
  Sex: Female

DRUGS (1)
  1. TUSSICAPS EXTENDED-RELEASE [Suspect]
     Dosage: UNK

REACTIONS (1)
  - DYSPNOEA [None]
